FAERS Safety Report 10405789 (Version 4)
Quarter: 2014Q4

REPORT INFORMATION
  Report Type: Report from Study
  Country: DE (occurrence: DE)
  Receive Date: 20140825
  Receipt Date: 20141027
  Transmission Date: 20150528
  Serious: Yes (Hospitalization, Other)
  Sender: FDA-Public Use
  Company Number: PHHY2014DE075557

PATIENT
  Age: 42 Year
  Sex: Female
  Weight: 68 kg

DRUGS (2)
  1. CARBAMAZEPIN [Concomitant]
     Active Substance: CARBAMAZEPINE
     Indication: EPILEPSY
     Dosage: 600 MG, (3X)
     Route: 065
     Dates: start: 1981
  2. EXTAVIA [Suspect]
     Active Substance: INTERFERON BETA-1B
     Indication: MULTIPLE SCLEROSIS
     Dosage: 250 UG, QOD (FROM APPROXIMATELY 2009)
     Route: 058

REACTIONS (9)
  - Skin ulcer [Recovered/Resolved]
  - Injection site inflammation [Unknown]
  - Feeling hot [Unknown]
  - Injection site injury [Not Recovered/Not Resolved]
  - Pulmonary embolism [Recovering/Resolving]
  - Injection site erythema [Unknown]
  - Thrombosis [Recovering/Resolving]
  - Injection site swelling [Unknown]
  - Injection site abscess [Unknown]

NARRATIVE: CASE EVENT DATE: 201404
